FAERS Safety Report 9121012 (Version 1)
Quarter: 2013Q1

REPORT INFORMATION
  Report Type: Spontaneous
  Country: US (occurrence: US)
  Receive Date: 20130226
  Receipt Date: 20130226
  Transmission Date: 20140127
  Serious: No
  Sender: FDA-Public Use
  Company Number: US-MYLANLABS-2012S1023230

PATIENT
  Sex: Male

DRUGS (1)
  1. HYDROCHLOROTHIAZIDE CAPSULES [Suspect]
     Route: 048
     Dates: start: 2007, end: 2009

REACTIONS (1)
  - Fatigue [Not Recovered/Not Resolved]
